FAERS Safety Report 11788606 (Version 1)
Quarter: 2015Q4

REPORT INFORMATION
  Report Type: Spontaneous
  Country: US (occurrence: None)
  Receive Date: 20151130
  Receipt Date: 20151130
  Transmission Date: 20160305
  Serious: No
  Sender: FDA-Public Use
  Company Number: None

PATIENT
  Age: 34 Year
  Sex: Female
  Weight: 129.73 kg

DRUGS (4)
  1. TIZANIDINE. [Concomitant]
     Active Substance: TIZANIDINE
  2. CLARITHROMYCIN 500MG MFG ZYDUS [Suspect]
     Active Substance: CLARITHROMYCIN
     Indication: GASTRIC ULCER
     Dates: start: 20151120, end: 20151124
  3. NUTRITION [Concomitant]
  4. OXYCODONE [Concomitant]
     Active Substance: OXYCODONE

REACTIONS (5)
  - Flatulence [None]
  - Vision blurred [None]
  - Chromaturia [None]
  - Back pain [None]
  - Dysuria [None]

NARRATIVE: CASE EVENT DATE: 20151121
